FAERS Safety Report 5350420-6 (Version None)
Quarter: 2007Q2

REPORT INFORMATION
  Report Type: 
  Country: None (occurrence: None)
  Receive Date: 20070605
  Receipt Date: 20070605
  Transmission Date: 20071010
  Serious: Yes (Other)
  Sender: FDA-Public Use
  Company Number: None

PATIENT
  Sex: Female
  Weight: 81.6475 kg

DRUGS (1)
  1. NEUPOGEN [Suspect]
     Indication: CHEMOTHERAPY
     Dosage: UNKNOWN TO ME - STANDARD?  THREE DAYS CONSEC   UNK
     Dates: start: 20070530, end: 20070601

REACTIONS (7)
  - ARTHROPATHY [None]
  - BALANCE DISORDER [None]
  - BONE PAIN [None]
  - DYSKINESIA [None]
  - GAIT DISTURBANCE [None]
  - MUSCLE SPASMS [None]
  - PAIN [None]
